FAERS Safety Report 10785843 (Version 2)
Quarter: 2015Q2

REPORT INFORMATION
  Report Type: Report from Study
  Country: AU (occurrence: AU)
  Receive Date: 20150211
  Receipt Date: 20150522
  Transmission Date: 20150821
  Serious: Yes (Death, Other)
  Sender: FDA-Public Use
  Company Number: AU-GILEAD-2015-0135981

PATIENT
  Sex: Male

DRUGS (2)
  1. SIMEPREVIR [Concomitant]
     Active Substance: SIMEPREVIR
     Indication: CHRONIC HEPATITIS C
     Dosage: 150 MG, QD
     Route: 048
     Dates: start: 20141224, end: 20150106
  2. SOFOSBUVIR [Suspect]
     Active Substance: SOFOSBUVIR
     Indication: CHRONIC HEPATITIS C
     Dosage: 400 MG, QD
     Route: 048
     Dates: start: 20141224, end: 20150106

REACTIONS (6)
  - Death [Fatal]
  - Thrombocytopenia [Not Recovered/Not Resolved]
  - Upper gastrointestinal haemorrhage [Fatal]
  - Coagulopathy [Not Recovered/Not Resolved]
  - Hepatic encephalopathy [Not Recovered/Not Resolved]
  - Hypovolaemic shock [Fatal]

NARRATIVE: CASE EVENT DATE: 20150106
